FAERS Safety Report 5497142-9 (Version None)
Quarter: 2007Q4

REPORT INFORMATION
  Report Type: 
  Country: None (occurrence: None)
  Receive Date: 20071025
  Receipt Date: 20070427
  Transmission Date: 20080405
  Serious: No
  Sender: FDA-Public Use
  Company Number: A0396048A

PATIENT
  Sex: Female

DRUGS (7)
  1. ADVAIR DISKUS 100/50 [Suspect]
     Indication: ASTHMA
     Dosage: 1PUFF TWICE PER DAY
     Route: 055
     Dates: start: 20030101, end: 20070301
  2. ADVAIR DISKUS 100/50 [Suspect]
     Dosage: 1PUFF TWICE PER DAY
     Route: 055
     Dates: start: 20070301
  3. UNSPECIFIED MEDICATION [Concomitant]
  4. SYNTHROID [Concomitant]
  5. MICARDIS [Concomitant]
  6. MAXZIDE [Concomitant]
  7. PROBECID [Concomitant]

REACTIONS (1)
  - LARYNGITIS [None]
